FAERS Safety Report 8042312-9 (Version None)
Quarter: 2011Q4

REPORT INFORMATION
  Report Type: 
  Country: None (occurrence: None)
  Receive Date: 20111209
  Receipt Date: 20110728
  Transmission Date: 20120403
  Serious: Yes (Other)
  Sender: FDA-Public Use
  Company Number: 2011SP035527

PATIENT
  Age: 55 Year
  Sex: Female

DRUGS (11)
  1. CALCIUM WITH VITAMIN D [Concomitant]
  2. RIBAVIRIN [Suspect]
     Indication: HEPATITIS C
     Dosage: 1000 MG;QD;PO ; 600 MG;QD
     Route: 048
     Dates: start: 20110603
  3. RIBAVIRIN [Suspect]
     Indication: HEPATIC CIRRHOSIS
     Dosage: 1000 MG;QD;PO ; 600 MG;QD
     Route: 048
     Dates: start: 20110603
  4. VITAMIN B COMPLEX CAP [Concomitant]
  5. PEG-INTRON [Suspect]
     Indication: PRODUCT USED FOR UNKNOWN INDICATION
     Dosage: 120 MCG;QW
     Dates: start: 20110603
  6. IRON [Concomitant]
  7. ORACEA [Concomitant]
  8. VICTRELIS [Suspect]
     Indication: PRODUCT USED FOR UNKNOWN INDICATION
     Dosage: 800 MG;TID;PO
     Route: 048
     Dates: start: 20110704
  9. LEXAPRO [Concomitant]
  10. IMITREX [Concomitant]
  11. FOLIC ACID [Concomitant]

REACTIONS (9)
  - WEIGHT DECREASED [None]
  - INFLUENZA LIKE ILLNESS [None]
  - MYALGIA [None]
  - NEUTROPENIA [None]
  - FATIGUE [None]
  - ASTHENIA [None]
  - INSOMNIA [None]
  - ODYNOPHAGIA [None]
  - DIARRHOEA [None]
